FAERS Safety Report 12455959 (Version 1)
Quarter: 2016Q2

REPORT INFORMATION
  Report Type: Spontaneous
  Country: US (occurrence: US)
  Receive Date: 20160610
  Receipt Date: 20160610
  Transmission Date: 20160815
  Serious: Yes (Other)
  Sender: FDA-Public Use
  Company Number: US-MDT-ADR-2016-01054

PATIENT
  Age: 42 Year
  Sex: Male

DRUGS (11)
  1. FENTANYL. [Suspect]
     Active Substance: FENTANYL
     Dosage: 114.92 MG/DAY
     Route: 037
  2. KLONOPIN [Suspect]
     Active Substance: CLONAZEPAM
  3. BUPIVACAINE. [Suspect]
     Active Substance: BUPIVACAINE
     Dosage: 0 .69 MG/ML
     Route: 037
  4. ROXICODONE [Suspect]
     Active Substance: OXYCODONE HYDROCHLORIDE
  5. BACLOFEN. [Suspect]
     Active Substance: BACLOFEN
  6. CYMBALTA [Suspect]
     Active Substance: DULOXETINE HYDROCHLORIDE
  7. LYRICA [Suspect]
     Active Substance: PREGABALIN
  8. BACLOFEN. [Suspect]
     Active Substance: BACLOFEN
     Route: 037
  9. MORPHINE [Suspect]
     Active Substance: MORPHINE
     Route: 037
  10. NUCYNTA [Suspect]
     Active Substance: TAPENTADOL HYDROCHLORIDE
  11. BUPIVACAINE. [Suspect]
     Active Substance: BUPIVACAINE
     Dosage: 0.05746 MCG/DAY
     Route: 037

REACTIONS (1)
  - Adverse drug reaction [Recovered/Resolved]
